FAERS Safety Report 11046699 (Version 2)
Quarter: 2015Q2

REPORT INFORMATION
  Report Type: Spontaneous
  Country: US (occurrence: None)
  Receive Date: 20150416
  Receipt Date: 20150429
  Transmission Date: 20150821
  Serious: Yes (Death)
  Sender: FDA-Public Use
  Company Number: 2822552

PATIENT
  Age: 82 Year
  Sex: Male
  Weight: 80.56 kg

DRUGS (4)
  1. DEXTROSE SALINE [Concomitant]
     Active Substance: DEXTROSE\SODIUM CHLORIDE
  2. FENTANYL. [Concomitant]
     Active Substance: FENTANYL
  3. NORMAL SALINE [Concomitant]
     Active Substance: SODIUM CHLORIDE
  4. ONDANSETRON [Suspect]
     Active Substance: ONDANSETRON
     Indication: NAUSEA
     Dosage: 4 MG MILLIGRAM(S), 1 HOUR, INTRAVENOUS (NOT OTHERWISE SPECIFIED)
     Route: 042
     Dates: start: 20150120

REACTIONS (4)
  - Blood urea increased [None]
  - Cardio-respiratory arrest [None]
  - Blood creatinine increased [None]
  - Death [None]

NARRATIVE: CASE EVENT DATE: 20150120
